FAERS Safety Report 9034775 (Version 1)
Quarter: 2013Q1

REPORT INFORMATION
  Report Type: Spontaneous
  Country: US (occurrence: None)
  Receive Date: 20130116
  Receipt Date: 20130116
  Transmission Date: 20140127
  Serious: No
  Sender: FDA-Public Use
  Company Number: None

PATIENT
  Sex: 0

DRUGS (1)
  1. OCTREOTIDE [Suspect]
     Indication: DIARRHOEA
     Dosage: 100MG TID SQ
     Route: 058
     Dates: start: 20121227

REACTIONS (1)
  - Back pain [None]
